FAERS Safety Report 23657630 (Version 1)
Quarter: 2024Q1

REPORT INFORMATION
  Report Type: Other
  Country: US (occurrence: US)
  Receive Date: 20240321
  Receipt Date: 20240321
  Transmission Date: 20240410
  Serious: Yes (Hospitalization, Other)
  Sender: FDA-Public Use
  Company Number: US-P+L Developments of Newyork Corporation-2154609

PATIENT
  Age: 23 Year
  Sex: Male

DRUGS (1)
  1. IBUPROFEN [Suspect]
     Active Substance: IBUPROFEN
     Route: 065

REACTIONS (7)
  - Unresponsive to stimuli [Recovering/Resolving]
  - Overdose [Unknown]
  - Seizure [Recovering/Resolving]
  - Myoclonus [Recovering/Resolving]
  - Acute kidney injury [Recovered/Resolved]
  - Lactic acidosis [Recovering/Resolving]
  - Metabolic acidosis [Recovered/Resolved]
